FAERS Safety Report 12256477 (Version 1)
Quarter: 2016Q2

REPORT INFORMATION
  Report Type: Spontaneous
  Country: US (occurrence: None)
  Receive Date: 20160411
  Receipt Date: 20160411
  Transmission Date: 20160815
  Serious: Yes (Other)
  Sender: FDA-Public Use
  Company Number: None

PATIENT
  Age: 62 Year
  Sex: Female
  Weight: 78.47 kg

DRUGS (11)
  1. FIBER [Concomitant]
     Active Substance: PSYLLIUM HUSK
  2. COLACE [Concomitant]
     Active Substance: DOCUSATE SODIUM
  3. TRAMADOL, 50 MG [Suspect]
     Active Substance: TRAMADOL
     Indication: FOOT OPERATION
     Route: 048
     Dates: start: 20160407, end: 20160407
  4. ALLEGRA [Concomitant]
     Active Substance: FEXOFENADINE HYDROCHLORIDE
  5. ELIQUIS [Concomitant]
     Active Substance: APIXABAN
  6. CARDIZEM [Concomitant]
     Active Substance: DILTIAZEM HYDROCHLORIDE
  7. ATORVASTATIN [Concomitant]
     Active Substance: ATORVASTATIN
  8. VITAMIND [Concomitant]
  9. TRAMADOL, 50 MG [Suspect]
     Active Substance: TRAMADOL
     Indication: PROCEDURAL PAIN
     Route: 048
     Dates: start: 20160407, end: 20160407
  10. KLONOPIN [Concomitant]
     Active Substance: CLONAZEPAM
  11. TYLENOL [Concomitant]
     Active Substance: ACETAMINOPHEN

REACTIONS (4)
  - Cardiac flutter [None]
  - Heart rate irregular [None]
  - Heart rate increased [None]
  - Feeling abnormal [None]

NARRATIVE: CASE EVENT DATE: 20160408
